FAERS Safety Report 11204843 (Version 3)
Quarter: 2015Q3

REPORT INFORMATION
  Report Type: Spontaneous
  Country: DE (occurrence: DE)
  Receive Date: 20150622
  Receipt Date: 20150722
  Transmission Date: 20151125
  Serious: Yes (Hospitalization, Other)
  Sender: FDA-Public Use
  Company Number: DE-ROCHE-1596449

PATIENT
  Age: 57 Year
  Sex: Male
  Weight: 105 kg

DRUGS (10)
  1. VALSARTAN. [Concomitant]
     Active Substance: VALSARTAN
     Route: 065
  2. PACLITAXEL. [Concomitant]
     Active Substance: PACLITAXEL
  3. HCTZ [Concomitant]
     Active Substance: HYDROCHLOROTHIAZIDE
     Route: 065
  4. DOXAZOSIN [Concomitant]
     Active Substance: DOXAZOSIN\DOXAZOSIN MESYLATE
  5. ZOFRAN [Concomitant]
     Active Substance: ONDANSETRON HYDROCHLORIDE
     Indication: NAUSEA
     Route: 048
     Dates: start: 20150610, end: 20150614
  6. AMLODIPIN [Concomitant]
     Active Substance: AMLODIPINE BESYLATE
     Indication: HYPERTENSION
     Route: 065
  7. AVASTIN [Suspect]
     Active Substance: BEVACIZUMAB
     Indication: METASTATIC BRONCHIAL CARCINOMA
     Route: 042
     Dates: start: 20150610
  8. ENOXAPARIN [Concomitant]
     Active Substance: ENOXAPARIN
     Indication: PROPHYLAXIS
     Route: 058
     Dates: start: 20150610
  9. DEXAMETHASON [Concomitant]
     Active Substance: DEXAMETHASONE
     Indication: NAUSEA
     Route: 048
     Dates: start: 20150610, end: 20150612
  10. MCP [Concomitant]
     Active Substance: METOCLOPRAMIDE HYDROCHLORIDE
     Indication: NAUSEA
     Route: 048
     Dates: start: 20150610, end: 20150614

REACTIONS (4)
  - Cardiac failure congestive [Unknown]
  - Pulmonary oedema [Recovered/Resolved]
  - Pleural effusion [Unknown]
  - Hypertensive crisis [Recovered/Resolved]

NARRATIVE: CASE EVENT DATE: 20150610
